FAERS Safety Report 7438564-6 (Version None)
Quarter: 2011Q2

REPORT INFORMATION
  Report Type: 
  Country: None (occurrence: None)
  Receive Date: 20110426
  Receipt Date: 20110420
  Transmission Date: 20111010
  Serious: Yes (Other)
  Sender: FDA-Public Use
  Company Number: IE-AMGEN-IRLSP2011020710

PATIENT
  Sex: Female

DRUGS (13)
  1. BUSCOPAN                           /00005101/ [Concomitant]
  2. MOTILIUM                           /00498201/ [Concomitant]
  3. ZOLPIDEM [Concomitant]
  4. ARANESP [Suspect]
     Indication: ANAEMIA OF MALIGNANT DISEASE
     Dosage: 150 A?G, QWK
     Route: 058
     Dates: start: 20110324
  5. IMODIUM                            /00384302/ [Concomitant]
  6. VELCADE [Concomitant]
  7. TRAMADOL [Concomitant]
  8. DEXAMETHASONE [Concomitant]
  9. LANSOPRAZOLE [Concomitant]
  10. ACETAMINOPHEN [Concomitant]
  11. MYCOSTATIN                         /00036501/ [Concomitant]
  12. ALPRAZOLAM [Concomitant]
  13. ENSURE                             /00472201/ [Concomitant]

REACTIONS (1)
  - COMA [None]
